FAERS Safety Report 4291758-3 (Version None)
Quarter: 2004Q1

REPORT INFORMATION
  Report Type: 
  Country: None (occurrence: None)
  Receive Date: 20040211
  Receipt Date: 20030224
  Transmission Date: 20041129
  Serious: No
  Sender: FDA-Public Use
  Company Number: US-GLAXOSMITHKLINE-A0397838A

PATIENT
  Age: 75 Year
  Sex: Female

DRUGS (10)
  1. IMITREX [Suspect]
     Indication: MIGRAINE
     Route: 065
  2. IMITREX [Suspect]
     Dosage: 12.5MG AS REQUIRED
     Route: 048
  3. OXYBUTYN [Concomitant]
     Dosage: 2.5MG TWICE PER DAY
     Route: 065
  4. VIOXX [Concomitant]
     Dosage: 12.5MG PER DAY
     Route: 065
  5. ESTRATEST [Concomitant]
     Route: 065
  6. ESTRACE [Concomitant]
     Route: 067
  7. SYNTHROID [Concomitant]
     Dosage: .088MG UNKNOWN
     Route: 065
  8. GLUCOSAMINE CHONDROITIN [Concomitant]
     Route: 065
  9. CALCIUM [Concomitant]
     Route: 065
  10. MULTIPLE VITAMIN [Concomitant]
     Route: 065

REACTIONS (2)
  - FEELING ABNORMAL [None]
  - HEADACHE [None]
